FAERS Safety Report 7764946-9 (Version None)
Quarter: 2011Q3

REPORT INFORMATION
  Report Type: 
  Country: None (occurrence: None)
  Receive Date: 20110921
  Receipt Date: 20110919
  Transmission Date: 20111222
  Serious: Yes (Other)
  Sender: FDA-Public Use
  Company Number: US-PFIZER INC-2011217692

PATIENT
  Sex: Female

DRUGS (1)
  1. CHANTIX [Suspect]
     Dosage: UNK
     Route: 048

REACTIONS (5)
  - ABNORMAL DREAMS [None]
  - VASCULITIS [None]
  - RASH PRURITIC [None]
  - HAND FRACTURE [None]
  - ENURESIS [None]
